FAERS Safety Report 22620695 (Version 2)
Quarter: 2023Q2

REPORT INFORMATION
  Report Type: Spontaneous
  Country: US (occurrence: US)
  Receive Date: 20230620
  Receipt Date: 20230622
  Transmission Date: 20230722
  Serious: Yes (Death, Life-Threatening, Hospitalization, Other)
  Sender: FDA-Public Use
  Company Number: US-PFIZER INC-202300223779

PATIENT
  Sex: Female
  Weight: 2.55 kg

DRUGS (9)
  1. AMICAR [Suspect]
     Active Substance: AMINOCAPROIC ACID
     Indication: Post procedural haemorrhage
     Dosage: UNK
  2. AMICAR [Suspect]
     Active Substance: AMINOCAPROIC ACID
     Dosage: 100 MG/KG, LOADING DOSE
  3. AMICAR [Suspect]
     Active Substance: AMINOCAPROIC ACID
     Dosage: 30 MG/KG/H CONTINUOUS INFUSION
  4. DOPAMINE [Concomitant]
     Active Substance: DOPAMINE HYDROCHLORIDE
     Dosage: UNK
  5. DOPAMINE [Concomitant]
     Active Substance: DOPAMINE HYDROCHLORIDE
     Dosage: 5 UG/KG/MIN, DOSE DECREASED
  6. HEPARIN [Concomitant]
     Active Substance: HEPARIN SODIUM
     Dosage: INFUSED CONTINUOUSLY 20 TO 45 U/KG/H),
  7. HEPARIN [Concomitant]
     Active Substance: HEPARIN SODIUM
     Dosage: INCREASED FROM 10 TO 25 U/KG/H.
  8. UROKINASE [Concomitant]
     Active Substance: UROKINASE
     Dosage: LOADING DOSE OF 4000 U/KG,
  9. UROKINASE [Concomitant]
     Active Substance: UROKINASE
     Dosage: CONTINUOUS INFUSION OF 4,000 U/KG/H.

REACTIONS (1)
  - Aortic thrombosis [Fatal]
